FAERS Safety Report 9813987 (Version 2)
Quarter: 2014Q1

REPORT INFORMATION
  Report Type: Spontaneous
  Country: US (occurrence: US)
  Receive Date: 20140113
  Receipt Date: 20140113
  Transmission Date: 20141002
  Serious: Yes (Other)
  Sender: FDA-Public Use
  Company Number: US-ASTELLAS-2013US010880

PATIENT
  Age: 86 Year
  Sex: Female

DRUGS (1)
  1. MYRBETRIQ [Suspect]
     Indication: HYPERTONIC BLADDER
     Dosage: 50 MG, UID/QD
     Route: 065
     Dates: start: 20130916, end: 20131009

REACTIONS (3)
  - Intentional drug misuse [Unknown]
  - Urinary tract infection [Unknown]
  - Rash [Recovered/Resolved]
